FAERS Safety Report 23191957 (Version 1)
Quarter: 2023Q4

REPORT INFORMATION
  Report Type: Spontaneous
  Country: BR (occurrence: BR)
  Receive Date: 20231116
  Receipt Date: 20231116
  Transmission Date: 20240109
  Serious: Yes (Hospitalization, Other)
  Sender: FDA-Public Use
  Company Number: BR-SETONPHARMA-2023SETOther Manufacturer00004

PATIENT
  Age: 20 Year
  Sex: Female
  Weight: 92.3 kg

DRUGS (11)
  1. PREDNISOLONE [Suspect]
     Active Substance: PREDNISOLONE
     Indication: Takayasu^s arteritis
     Route: 048
     Dates: start: 20230920, end: 20231024
  2. UPADACITINIB [Suspect]
     Active Substance: UPADACITINIB
     Indication: Takayasu^s arteritis
     Route: 048
     Dates: start: 20230920, end: 20231027
  3. ASPIRIN [Concomitant]
     Active Substance: ASPIRIN
     Indication: Takayasu^s arteritis
     Dates: start: 2018
  4. SPIRONOLACTONE [Concomitant]
     Active Substance: SPIRONOLACTONE
     Indication: Hypertension
     Dates: start: 201801
  5. OMEPRAZOLE [Concomitant]
     Active Substance: OMEPRAZOLE
     Indication: Takayasu^s arteritis
     Dates: start: 2018
  6. CALCIUM CARBONATE [Concomitant]
     Active Substance: CALCIUM CARBONATE
     Indication: Takayasu^s arteritis
     Dates: start: 2019
  7. ERGOCALCIFEROL [Concomitant]
     Active Substance: ERGOCALCIFEROL
     Indication: Takayasu^s arteritis
     Dates: start: 201912
  8. IVABRADINE OXALATE [Concomitant]
     Active Substance: IVABRADINE OXALATE
     Indication: Arrhythmia
     Dates: start: 2020
  9. FUROSEMIDE [Concomitant]
     Active Substance: FUROSEMIDE
     Indication: Hypertension
     Dates: start: 2020
  10. CYCLOBENZAPRINE [Concomitant]
     Active Substance: CYCLOBENZAPRINE
     Indication: Insomnia
     Dates: start: 202112
  11. ALBENDAZOLE [Concomitant]
     Active Substance: ALBENDAZOLE
     Indication: Takayasu^s arteritis
     Dates: start: 20230929, end: 20231003

REACTIONS (1)
  - Cerebrovascular accident [Recovered/Resolved]

NARRATIVE: CASE EVENT DATE: 20231024
